FAERS Safety Report 4889277-6 (Version None)
Quarter: 2006Q1

REPORT INFORMATION
  Report Type: 
  Country: None (occurrence: None)
  Receive Date: 20060124
  Receipt Date: 20060116
  Transmission Date: 20060701
  Serious: Yes (Other)
  Sender: FDA-Public Use
  Company Number: NO-JNJFOC-20060100922

PATIENT
  Sex: Male

DRUGS (4)
  1. REMICADE [Suspect]
     Dosage: SECOND INFUSION
     Route: 042
  2. REMICADE [Suspect]
     Indication: CROHN'S DISEASE
     Dosage: FIRST INFUSION 3-4 YEARS AGO.
     Route: 042
  3. IMUREL [Concomitant]
     Indication: CROHN'S DISEASE
     Route: 048
  4. PENTASA [Concomitant]
     Indication: CROHN'S DISEASE
     Route: 048

REACTIONS (4)
  - ARTHRALGIA [None]
  - DYSPNOEA [None]
  - INFUSION RELATED REACTION [None]
  - JOINT EFFUSION [None]
